FAERS Safety Report 4735816-5 (Version None)
Quarter: 2005Q3

REPORT INFORMATION
  Report Type: 
  Country: None (occurrence: None)
  Receive Date: 20050805
  Receipt Date: 20050725
  Transmission Date: 20060218
  Serious: Yes (Other)
  Sender: FDA-Public Use
  Company Number: 2005AP04063

PATIENT
  Age: 24879 Day
  Sex: Female

DRUGS (8)
  1. ATACAND HCT [Suspect]
     Indication: ESSENTIAL HYPERTENSION
     Dosage: 16 MG + 12.5 MG DAILY
     Route: 048
     Dates: start: 20031120
  2. NORVASC [Suspect]
     Indication: ESSENTIAL HYPERTENSION
     Route: 048
     Dates: start: 20031120
  3. NOTEN [Suspect]
     Indication: ESSENTIAL HYPERTENSION
     Route: 048
     Dates: start: 20031120
  4. DIAMICRON [Suspect]
     Indication: DIABETES MELLITUS
     Route: 048
     Dates: start: 20031120
  5. DIABEX [Suspect]
     Indication: DIABETES MELLITUS
     Route: 048
     Dates: start: 20031120
  6. AVANDIA [Suspect]
     Indication: DIABETES MELLITUS
     Route: 048
     Dates: start: 20040624, end: 20040722
  7. AVANDIA [Suspect]
     Route: 048
     Dates: start: 20040727
  8. ZOCOR [Suspect]
     Indication: METABOLIC DISORDER
     Route: 048
     Dates: start: 20031120

REACTIONS (3)
  - BLOOD CREATININE INCREASED [None]
  - HAEMOGLOBIN DECREASED [None]
  - VITAMIN B12 DECREASED [None]
